FAERS Safety Report 14914184 (Version 2)
Quarter: 2018Q3

REPORT INFORMATION
  Report Type: Spontaneous
  Country: US (occurrence: US)
  Receive Date: 20180518
  Receipt Date: 20180704
  Transmission Date: 20181010
  Serious: Yes (Hospitalization, Other)
  Sender: FDA-Public Use
  Company Number: US-DSJP-DSU-2017-140924

PATIENT

DRUGS (3)
  1. AZOR [Suspect]
     Active Substance: AMLODIPINE BESYLATE\OLMESARTAN MEDOXOMIL
     Indication: PRODUCT USED FOR UNKNOWN INDICATION
     Dosage: 10?40 MG, QD
  2. BENICAR [Suspect]
     Active Substance: OLMESARTAN MEDOXOMIL
     Indication: PRODUCT USED FOR UNKNOWN INDICATION
     Dosage: 20 MG, QD
     Route: 048
     Dates: start: 20060101
  3. BENICAR [Suspect]
     Active Substance: OLMESARTAN MEDOXOMIL
     Dosage: 40 MG, QD
     Route: 048
     Dates: start: 20070101

REACTIONS (13)
  - Sprue-like enteropathy [Recovering/Resolving]
  - Haemorrhoids [Unknown]
  - Hiatus hernia [Unknown]
  - Oesophageal stenosis [Unknown]
  - Chronic kidney disease [Unknown]
  - Coeliac disease [Recovered/Resolved]
  - Cholecystitis [Recovered/Resolved]
  - Constipation [Unknown]
  - Oesophageal obstruction [Not Recovered/Not Resolved]
  - Pancreatitis [Unknown]
  - Gastrooesophageal reflux disease [Not Recovered/Not Resolved]
  - Impaired gastric emptying [Unknown]
  - Acquired oesophageal web [Not Recovered/Not Resolved]

NARRATIVE: CASE EVENT DATE: 20070101
